FAERS Safety Report 4538063-5 (Version None)
Quarter: 2004Q4

REPORT INFORMATION
  Report Type: 
  Country: None (occurrence: None)
  Receive Date: 20041216
  Receipt Date: 20041206
  Transmission Date: 20050328
  Serious: Yes (Life-Threatening)
  Sender: FDA-Public Use
  Company Number: 200410572BYL

PATIENT
  Age: 5 Month
  Sex: Male
  Weight: 6.14 kg

DRUGS (9)
  1. GAMIMUNE N 5% [Suspect]
     Indication: KAWASAKI'S DISEASE
     Dosage: 250 ML, TOTAL DAILY, INTRAVENOUS
     Route: 042
     Dates: start: 20041005
  2. GAMIMUNE N 5% [Suspect]
  3. GAMIMUNE N 5% [Suspect]
  4. GAMIMUNE N 5% [Suspect]
  5. GAMIMUNE N 5% [Suspect]
  6. GAMIMUNE N 5% [Suspect]
  7. SOLITA-T3 INJECTION [Concomitant]
  8. SOLU-MEDROL [Concomitant]
  9. MIRACLID [Concomitant]

REACTIONS (4)
  - CARDIAC FAILURE [None]
  - CARDIOMEGALY [None]
  - GALLOP RHYTHM PRESENT [None]
  - OVERDOSE [None]
